FAERS Safety Report 6582774-7 (Version None)
Quarter: 2010Q1

REPORT INFORMATION
  Report Type: 
  Country: None (occurrence: None)
  Receive Date: 20100216
  Receipt Date: 20100203
  Transmission Date: 20100710
  Serious: Yes (Other)
  Sender: FDA-Public Use
  Company Number: DE-PFIZER INC-2010014241

PATIENT
  Age: 73 Year
  Sex: Female

DRUGS (5)
  1. CEFPODOXIME PROXETIL [Suspect]
  2. URO-TARIVID [Suspect]
     Indication: BACTERIURIA
  3. AVELOX [Suspect]
  4. CIPROFLOXACIN [Suspect]
  5. TAVANIC [Suspect]

REACTIONS (13)
  - ASTHENIA [None]
  - BONE PAIN [None]
  - DIZZINESS [None]
  - ERYTHEMA NODOSUM [None]
  - EUSTACHIAN TUBE OBSTRUCTION [None]
  - HEADACHE [None]
  - HICCUPS [None]
  - MUSCLE SPASMS [None]
  - MUSCULAR WEAKNESS [None]
  - MUSCULOSKELETAL PAIN [None]
  - PAIN IN EXTREMITY [None]
  - TENDON PAIN [None]
  - VISION BLURRED [None]
